FAERS Safety Report 10472645 (Version 1)
Quarter: 2014Q3

REPORT INFORMATION
  Report Type: Spontaneous
  Country: US (occurrence: None)
  Receive Date: 20140922
  Receipt Date: 20140922
  Transmission Date: 20150326
  Serious: Yes (Hospitalization)
  Sender: FDA-Public Use
  Company Number: LIT-14-0041-W

PATIENT
  Age: 18 Year
  Sex: Female

DRUGS (1)
  1. CETIRIZINE [Suspect]
     Active Substance: CETIRIZINE HYDROCHLORIDE
     Indication: RHINITIS ALLERGIC

REACTIONS (4)
  - Suicidal ideation [None]
  - Paranoia [None]
  - Delusional perception [None]
  - Depression [None]

NARRATIVE: CASE EVENT DATE: 201305
